FAERS Safety Report 18330570 (Version 3)
Quarter: 2020Q4

REPORT INFORMATION
  Report Type: Spontaneous
  Country: US (occurrence: US)
  Receive Date: 20200930
  Receipt Date: 20201103
  Transmission Date: 20210113
  Serious: No
  Sender: FDA-Public Use
  Company Number: US-UNITED THERAPEUTICS-UNT-2020-014175

PATIENT
  Sex: Female
  Weight: 142.86 kg

DRUGS (6)
  1. REMODULIN [Suspect]
     Active Substance: TREPROSTINIL
     Dosage: 0.052 ?G/KG, CONTINUING
     Route: 041
     Dates: start: 2020
  2. OPSUMIT [Concomitant]
     Active Substance: MACITENTAN
     Indication: PRODUCT USED FOR UNKNOWN INDICATION
     Dosage: UNK
     Route: 065
  3. ADEMPAS [Concomitant]
     Active Substance: RIOCIGUAT
     Indication: PRODUCT USED FOR UNKNOWN INDICATION
     Dosage: UNK
     Route: 065
  4. REMODULIN [Suspect]
     Active Substance: TREPROSTINIL
     Indication: PULMONARY ARTERIAL HYPERTENSION
     Dosage: UNK, CONTINUING
     Route: 041
     Dates: start: 20200227
  5. COUMADIN [Suspect]
     Active Substance: WARFARIN SODIUM
     Indication: PRODUCT USED FOR UNKNOWN INDICATION
     Dosage: UNK
     Route: 065
  6. REMODULIN [Suspect]
     Active Substance: TREPROSTINIL
     Dosage: 0.043 ?G/KG, CONTINUING
     Route: 041
     Dates: start: 2020

REACTIONS (6)
  - Dyspepsia [Unknown]
  - Blood potassium abnormal [Unknown]
  - International normalised ratio abnormal [Unknown]
  - Weight decreased [Unknown]
  - Back pain [Unknown]
  - Diarrhoea [Unknown]

NARRATIVE: CASE EVENT DATE: 2020
